FAERS Safety Report 23224251 (Version 3)
Quarter: 2025Q1

REPORT INFORMATION
  Report Type: Report from Study
  Country: JP (occurrence: JP)
  Receive Date: 20231124
  Receipt Date: 20250306
  Transmission Date: 20250409
  Serious: Yes (Life-Threatening, Hospitalization, Other)
  Sender: GLAXOSMITHKLINE
  Company Number: JP-GSK-JP2020JPN134729

PATIENT

DRUGS (25)
  1. BELIMUMAB [Suspect]
     Active Substance: BELIMUMAB
     Indication: Systemic lupus erythematosus
     Route: 041
     Dates: start: 20200130, end: 20200130
  2. BELIMUMAB [Suspect]
     Active Substance: BELIMUMAB
     Route: 041
     Dates: start: 20200213, end: 20200213
  3. BELIMUMAB [Suspect]
     Active Substance: BELIMUMAB
     Route: 041
     Dates: start: 20200227, end: 20200227
  4. BELIMUMAB [Suspect]
     Active Substance: BELIMUMAB
     Route: 041
     Dates: start: 20200323, end: 20200323
  5. BELIMUMAB [Suspect]
     Active Substance: BELIMUMAB
     Route: 041
     Dates: start: 20200423, end: 20200423
  6. BELIMUMAB [Suspect]
     Active Substance: BELIMUMAB
     Route: 041
     Dates: start: 20200521, end: 20200521
  7. BELIMUMAB [Suspect]
     Active Substance: BELIMUMAB
     Route: 041
     Dates: start: 20200618, end: 20200618
  8. BELIMUMAB [Suspect]
     Active Substance: BELIMUMAB
     Route: 041
     Dates: start: 20200716, end: 20200716
  9. BELIMUMAB [Suspect]
     Active Substance: BELIMUMAB
     Route: 041
     Dates: start: 20200820, end: 20200820
  10. BELIMUMAB [Suspect]
     Active Substance: BELIMUMAB
     Route: 041
     Dates: start: 20200917, end: 20200917
  11. BELIMUMAB [Suspect]
     Active Substance: BELIMUMAB
     Route: 041
     Dates: start: 20201015, end: 20201015
  12. BELIMUMAB [Suspect]
     Active Substance: BELIMUMAB
     Route: 041
     Dates: start: 20201112, end: 20201112
  13. BELIMUMAB [Suspect]
     Active Substance: BELIMUMAB
     Route: 041
     Dates: start: 20201217, end: 20201217
  14. BELIMUMAB [Suspect]
     Active Substance: BELIMUMAB
     Route: 041
     Dates: start: 20210114, end: 20210114
  15. BELIMUMAB [Suspect]
     Active Substance: BELIMUMAB
     Route: 041
     Dates: start: 2021, end: 2021
  16. BELIMUMAB [Suspect]
     Active Substance: BELIMUMAB
     Route: 041
     Dates: start: 20210715, end: 20210715
  17. CELLCEPT [Suspect]
     Active Substance: MYCOPHENOLATE MOFETIL
     Indication: Systemic lupus erythematosus
     Dosage: 150-600 MG, BID
     Dates: start: 20200130, end: 20210728
  18. PREDNISOLONE [Suspect]
     Active Substance: PREDNISOLONE
     Indication: Systemic lupus erythematosus
     Dosage: 2 MG, 1D
     Route: 048
     Dates: end: 20200716
  19. PREDNISOLONE [Suspect]
     Active Substance: PREDNISOLONE
     Dosage: 1.5 MG, 1D
     Route: 048
     Dates: start: 20200821, end: 20201015
  20. PREDNISOLONE [Suspect]
     Active Substance: PREDNISOLONE
     Dosage: 1 MG, 1D
     Route: 048
     Dates: start: 20201016, end: 20201217
  21. PREDNISOLONE [Suspect]
     Active Substance: PREDNISOLONE
     Dosage: 0.5 MG, 1D
     Route: 048
     Dates: start: 20201218, end: 20210218
  22. CORTRIL [Suspect]
     Active Substance: HYDROCORTISONE
     Indication: Systemic lupus erythematosus
     Dosage: 8 MG, 1D
     Route: 048
     Dates: start: 20200717, end: 20200820
  23. HYDROXYCHLOROQUINE [Concomitant]
     Active Substance: HYDROXYCHLOROQUINE
     Indication: Systemic lupus erythematosus
     Dosage: 200 MG, QD
     Dates: start: 20200130, end: 20210902
  24. ALFAROL [Concomitant]
     Active Substance: ALFACALCIDOL
     Indication: Osteoporosis prophylaxis
     Dosage: 0.5 ?G, QD
     Dates: start: 20200130, end: 20210902
  25. INFLUENZA VIRUS VACCINE [Concomitant]
     Active Substance: INFLUENZA VIRUS VACCINE
     Dates: start: 20201019, end: 20201019

REACTIONS (6)
  - Hodgkin^s disease [Recovered/Resolved]
  - Skin ulcer [Recovering/Resolving]
  - Oral herpes [Recovered/Resolved]
  - Skin ulcer [Recovered/Resolved]
  - Oral herpes [Recovered/Resolved]
  - Skin ulcer [Recovered/Resolved]

NARRATIVE: CASE EVENT DATE: 20200330
